FAERS Safety Report 8533648-3 (Version None)
Quarter: 2012Q3

REPORT INFORMATION
  Report Type: 
  Country: None (occurrence: None)
  Receive Date: 20120724
  Receipt Date: 20120717
  Transmission Date: 20120928
  Serious: Yes (Hospitalization)
  Sender: FDA-Public Use
  Company Number: US-ELI_LILLY_AND_COMPANY-US201201003786

PATIENT
  Sex: Female
  Weight: 78.5 kg

DRUGS (10)
  1. PHENERGAN HCL [Concomitant]
     Dosage: UNK UNK, PRN
     Route: 048
  2. JANUMET [Concomitant]
     Dosage: UNK UNK, BID
     Route: 048
  3. ESTROGENS CONJUGATED [Concomitant]
     Dosage: UNK UNK, QD
     Route: 048
  4. FORTEO [Suspect]
     Indication: OSTEOPOROSIS
     Dosage: 20 UG, QD
     Dates: start: 20110101
  5. FORTEO [Suspect]
     Dosage: 20 UG, QD
  6. FORTEO [Suspect]
     Dosage: 20 UG, QD
  7. NORCO [Concomitant]
     Route: 048
  8. CRESTON [Concomitant]
     Dosage: UNK UNK, QD
     Route: 048
  9. AMITRIPTYLENE [Concomitant]
     Dosage: UNK G, UNK
     Route: 048
  10. COCAINE [Concomitant]

REACTIONS (12)
  - THINKING ABNORMAL [None]
  - DEPRESSION [None]
  - COUGH [None]
  - DRUG ABUSE [None]
  - GAIT DISTURBANCE [None]
  - TENDONITIS [None]
  - PAIN [None]
  - MALAISE [None]
  - MEMORY IMPAIRMENT [None]
  - CHEST PAIN [None]
  - DYSPHONIA [None]
  - SINUS CONGESTION [None]
